FAERS Safety Report 12930812 (Version 1)
Quarter: 2016Q4

REPORT INFORMATION
  Report Type: Spontaneous
  Country: US (occurrence: US)
  Receive Date: 20161110
  Receipt Date: 20161110
  Transmission Date: 20170207
  Serious: Yes (Other)
  Sender: FDA-Public Use
  Company Number: US-JNJFOC-20150713875

PATIENT
  Sex: Male

DRUGS (4)
  1. RISPERDAL [Suspect]
     Active Substance: RISPERIDONE
     Indication: MAJOR DEPRESSION
     Dosage: 1 MG TO 3 MG
     Route: 048
     Dates: start: 2012, end: 2012
  2. RISPERDAL [Suspect]
     Active Substance: RISPERIDONE
     Indication: POST-TRAUMATIC STRESS DISORDER
     Dosage: 1 MG TO 3 MG
     Route: 048
     Dates: start: 2012, end: 2012
  3. RISPERDAL [Suspect]
     Active Substance: RISPERIDONE
     Indication: GENERALISED ANXIETY DISORDER
     Dosage: 1 MG TO 3 MG
     Route: 048
     Dates: start: 2012, end: 2012
  4. RISPERIDONE. [Suspect]
     Active Substance: RISPERIDONE
     Indication: PRODUCT USED FOR UNKNOWN INDICATION
     Route: 048

REACTIONS (4)
  - Abnormal weight gain [Unknown]
  - Suicidal ideation [Unknown]
  - Gynaecomastia [Unknown]
  - Hyperprolactinaemia [Unknown]

NARRATIVE: CASE EVENT DATE: 2012
